FAERS Safety Report 5333165-8 (Version None)
Quarter: 2007Q2

REPORT INFORMATION
  Report Type: 
  Country: None (occurrence: None)
  Receive Date: 20070524
  Receipt Date: 20070511
  Transmission Date: 20071010
  Serious: Yes (Life-Threatening, Hospitalization)
  Sender: FDA-Public Use
  Company Number: JP-SANOFI-SYNTHELABO-A01200705347

PATIENT
  Age: 25 Year
  Sex: Female

DRUGS (2)
  1. OXYTOCIN [Concomitant]
     Indication: LABOUR PAIN
     Dosage: UNK
     Route: 065
  2. PENTAZOCINE LACTATE [Suspect]
     Indication: DRUG USE FOR UNKNOWN INDICATION
     Dosage: UNK
     Route: 042

REACTIONS (2)
  - SHOCK HAEMORRHAGIC [None]
  - UTERINE HAEMORRHAGE [None]
